FAERS Safety Report 7476086-7 (Version None)
Quarter: 2011Q2

REPORT INFORMATION
  Report Type: 
  Country: None (occurrence: None)
  Receive Date: 20110512
  Receipt Date: 20110505
  Transmission Date: 20111010
  Serious: Yes (Hospitalization, Other)
  Sender: FDA-Public Use
  Company Number: DE-AMGEN-DEUSP2011018410

PATIENT
  Sex: Female
  Weight: 74.966 kg

DRUGS (2)
  1. PROLIA [Suspect]
     Indication: OSTEOPOROSIS
     Dosage: UNK UNK, ONE TIME DOSE
     Dates: start: 20110323, end: 20110323
  2. BISOPROLOL FUMARATE [Concomitant]
     Dosage: 1.25 UNK, UNK
     Dates: start: 20040101

REACTIONS (7)
  - PAIN [None]
  - MYALGIA [None]
  - BONE PAIN [None]
  - STAPHYLOCOCCAL INFECTION [None]
  - ENDOCARDITIS [None]
  - SEPTIC SHOCK [None]
  - MOBILITY DECREASED [None]
